FAERS Safety Report 9776108 (Version 2)
Quarter: 2013Q4

REPORT INFORMATION
  Report Type: Spontaneous
  Country: US (occurrence: US)
  Receive Date: 20131220
  Receipt Date: 20131220
  Transmission Date: 20140711
  Serious: No
  Sender: FDA-Public Use
  Company Number: US-MYLANLABS-2013S1020962

PATIENT
  Age: 52 Year
  Sex: Female
  Weight: 83.92 kg

DRUGS (1)
  1. FENOFIBRATE TABLETS [Suspect]
     Indication: BLOOD TRIGLYCERIDES INCREASED
     Route: 048
     Dates: start: 20130907, end: 20130914

REACTIONS (1)
  - Dyspnoea [Recovered/Resolved]
